FAERS Safety Report 21365899 (Version 1)
Quarter: 2022Q3

REPORT INFORMATION
  Report Type: Spontaneous
  Country: CR (occurrence: CR)
  Receive Date: 20220922
  Receipt Date: 20220922
  Transmission Date: 20221027
  Serious: Yes (Hospitalization)
  Sender: FDA-Public Use
  Company Number: CR-PFIZER INC-PV202200055447

PATIENT
  Age: 32 Year
  Sex: Female

DRUGS (5)
  1. ALDACTONE [Suspect]
     Active Substance: SPIRONOLACTONE
     Indication: Hirsutism
     Dosage: 100 MG, 1X/DAY
     Dates: start: 202009
  2. ALDACTONE [Suspect]
     Active Substance: SPIRONOLACTONE
     Indication: Polycystic ovaries
  3. ALDACTONE [Suspect]
     Active Substance: SPIRONOLACTONE
     Indication: Type 2 diabetes mellitus
  4. XIGDUO XR [Concomitant]
     Active Substance: DAPAGLIFLOZIN PROPANEDIOL\METFORMIN HYDROCHLORIDE
     Dosage: UNK
     Dates: start: 202009
  5. OZEMPIC [Concomitant]
     Active Substance: SEMAGLUTIDE
     Dosage: UNK
     Dates: start: 202107

REACTIONS (2)
  - Breast pain [Recovered/Resolved]
  - Breast swelling [Recovered/Resolved]

NARRATIVE: CASE EVENT DATE: 20220801
